FAERS Safety Report 9888662 (Version 1)
Quarter: 2014Q1

REPORT INFORMATION
  Report Type: Spontaneous
  Country: US (occurrence: None)
  Receive Date: 20140207
  Receipt Date: 20140207
  Transmission Date: 20141002
  Serious: Yes (Death)
  Sender: FDA-Public Use
  Company Number: SYM-2014-16496

PATIENT
  Age: 34 Year
  Sex: Male

DRUGS (12)
  1. SALICYLATE [Suspect]
     Route: 048
  2. TOPIRAMATE [Suspect]
     Route: 048
  3. HYDROZYZINE [Suspect]
  4. PROPRANOLOL [Suspect]
     Route: 048
  5. CARVEDILOL [Suspect]
     Route: 048
  6. LURASIDONE [Suspect]
     Route: 048
  7. RANOLAZINE [Suspect]
     Route: 048
  8. MILNACIPRAN [Suspect]
     Route: 048
  9. MIRTAZAPINE [Suspect]
     Route: 048
  10. VILAZODONE [Suspect]
     Route: 048
  11. ACETAMINOPHEN/HYDROCODONE [Suspect]
     Route: 048
  12. ALPRAZOLAM [Suspect]
     Route: 048

REACTIONS (1)
  - Completed suicide [None]
